FAERS Safety Report 25646356 (Version 4)
Quarter: 2025Q4

REPORT INFORMATION
  Report Type: Spontaneous
  Country: US (occurrence: US)
  Receive Date: 20250805
  Receipt Date: 20251010
  Transmission Date: 20260117
  Serious: Yes (Death, Life-Threatening, Other)
  Sender: ELI LILLY AND COMPANY
  Company Number: US-ELI_LILLY_AND_COMPANY-US202507030025

PATIENT
  Age: 82 Year
  Sex: Male

DRUGS (3)
  1. KISUNLA [Suspect]
     Active Substance: DONANEMAB-AZBT
     Indication: Cognitive disorder
     Dosage: UNK UNK, UNKNOWN (1ST INFUSION)
     Route: 042
     Dates: start: 202501
  2. KISUNLA [Suspect]
     Active Substance: DONANEMAB-AZBT
     Indication: Dementia Alzheimer^s type
     Dosage: UNK UNK, UNKNOWN
     Route: 042
  3. KISUNLA [Suspect]
     Active Substance: DONANEMAB-AZBT
     Dosage: 1400 MG, UNKNOWN (8TH INFUSION)
     Route: 042
     Dates: start: 20250729

REACTIONS (8)
  - Arteriosclerosis [Fatal]
  - Atrial fibrillation [Unknown]
  - Hypotension [Unknown]
  - Oxygen saturation decreased [Unknown]
  - Pericardial effusion [Unknown]
  - Dizziness [Unknown]
  - Vision blurred [Unknown]
  - Infusion related reaction [Unknown]

NARRATIVE: CASE EVENT DATE: 20250701
